FAERS Safety Report 22118210 (Version 1)
Quarter: 2023Q1

REPORT INFORMATION
  Report Type: Report from Study
  Country: US (occurrence: None)
  Receive Date: 20230321
  Receipt Date: 20230321
  Transmission Date: 20230418
  Serious: Yes (Death)
  Sender: FDA-Public Use
  Company Number: US-ROCHE-3313313

PATIENT

DRUGS (2)
  1. ATEZOLIZUMAB [Suspect]
     Active Substance: ATEZOLIZUMAB
     Indication: Neoplasm
     Dosage: DATE OF FINAL DOSE WAS ON 19/APR/2019?60 MINUTES ON DAY 1 AND REPEAT EVERY 21 DAYS
     Route: 041
     Dates: start: 20190308
  2. BEVACIZUMAB [Suspect]
     Active Substance: BEVACIZUMAB
     Indication: Neoplasm
     Dosage: DATE OF FINAL DOSE WAS ON 19/APR/2019?60 MINUTES ON DAY 1 AND REPEAT EVERY 21 DAYS
     Route: 042
     Dates: start: 20190308

REACTIONS (1)
  - Death [Fatal]
